FAERS Safety Report 7730556-2 (Version None)
Quarter: 2011Q3

REPORT INFORMATION
  Report Type: 
  Country: None (occurrence: None)
  Receive Date: 20110906
  Receipt Date: 20110829
  Transmission Date: 20111222
  Serious: Yes (Hospitalization)
  Sender: FDA-Public Use
  Company Number: US-AMGEN-USASP2011044314

PATIENT
  Age: 60 Year
  Sex: Female

DRUGS (1)
  1. ENBREL [Suspect]
     Indication: RHEUMATOID ARTHRITIS
     Dosage: 50 MG, QWK
     Dates: start: 20041221

REACTIONS (9)
  - PROCEDURAL PAIN [None]
  - ABDOMINAL DISCOMFORT [None]
  - FEELING COLD [None]
  - RHEUMATOID ARTHRITIS [None]
  - UPPER RESPIRATORY TRACT INFECTION [None]
  - GAIT DISTURBANCE [None]
  - INFLUENZA [None]
  - JOINT SWELLING [None]
  - WEIGHT INCREASED [None]
